FAERS Safety Report 25949271 (Version 1)
Quarter: 2025Q4

REPORT INFORMATION
  Report Type: Spontaneous
  Country: US (occurrence: US)
  Receive Date: 20251022
  Receipt Date: 20251022
  Transmission Date: 20260117
  Serious: No
  Sender: VERTEX
  Company Number: US-VERTEX PHARMACEUTICALS-2025-017130

PATIENT

DRUGS (1)
  1. SUZETRIGINE [Suspect]
     Active Substance: SUZETRIGINE
     Indication: Pain
     Dosage: 50 MG SUZETRIGINE
     Route: 048

REACTIONS (4)
  - Epistaxis [Recovered/Resolved]
  - Coagulopathy [Recovered/Resolved]
  - Haemorrhage [Recovered/Resolved]
  - Off label use [Unknown]
